FAERS Safety Report 18886230 (Version 1)
Quarter: 2021Q1

REPORT INFORMATION
  Report Type: Spontaneous
  Country: FR (occurrence: FR)
  Receive Date: 20210212
  Receipt Date: 20210212
  Transmission Date: 20210420
  Serious: Yes (Other)
  Sender: FDA-Public Use
  Company Number: FR-CURIUM-2021000017

PATIENT
  Age: 28 Year
  Sex: Female
  Weight: 51 kg

DRUGS (2)
  1. OSTEOCIS [Suspect]
     Active Substance: TECHNETIUM TC-99M OXIDRONATE
     Indication: BONE SCAN
     Route: 042
     Dates: start: 20210112, end: 20210112
  2. ULTRA?TECHNEKOW FM [Suspect]
     Active Substance: TECHNETIUM TC-99M SODIUM PERTECHNETATE
     Indication: BONE SCAN
     Route: 042
     Dates: start: 20210112, end: 20210112

REACTIONS (3)
  - Injection site extravasation [Recovered/Resolved]
  - Injection site oedema [Recovered/Resolved]
  - Injection site erythema [Recovered/Resolved]

NARRATIVE: CASE EVENT DATE: 20210112
